FAERS Safety Report 24442384 (Version 2)
Quarter: 2024Q4

REPORT INFORMATION
  Report Type: Report from Study
  Country: US (occurrence: US)
  Receive Date: 20241016
  Receipt Date: 20241017
  Transmission Date: 20250115
  Serious: No
  Sender: ROCHE
  Company Number: US-ROCHE-3552275

PATIENT
  Age: 34 Year
  Sex: Male

DRUGS (1)
  1. HEMLIBRA [Suspect]
     Active Substance: EMICIZUMAB-KXWH
     Indication: Haemophilia
     Dosage: INJECT 112.5MG (0.75ML TOTAL USING 0.4ML FROM ONE 60MG VIAL AND 0.35 ML FROM A SECOND 60MG VIAL. DIS
     Route: 058

REACTIONS (1)
  - Product dose omission in error [Unknown]
